FAERS Safety Report 8997617 (Version 4)
Quarter: 2013Q2

REPORT INFORMATION
  Report Type: Spontaneous
  Country: US (occurrence: US)
  Receive Date: 20130104
  Receipt Date: 20130520
  Transmission Date: 20140414
  Serious: Yes (Hospitalization, Disabling, Other)
  Sender: FDA-Public Use
  Company Number: US-009507513-1212USA010546

PATIENT
  Sex: Female
  Weight: 60.6 kg

DRUGS (15)
  1. FOSAMAX [Suspect]
     Indication: OSTEOPENIA
     Dosage: 70 MG, QW
     Route: 048
     Dates: start: 200205, end: 200507
  2. FOSAMAX [Suspect]
     Indication: OSTEOPOROSIS
  3. FOSAMAX PLUS D [Suspect]
     Indication: OSTEOPOROSIS
     Dosage: 70 MG, QW
     Route: 048
     Dates: start: 200508, end: 201010
  4. CALCIUM (UNSPECIFIED) [Concomitant]
     Indication: OSTEOPOROSIS
  5. TUMS [Concomitant]
     Indication: OSTEOPOROSIS
  6. VITAMINS (UNSPECIFIED) [Concomitant]
     Dosage: UNK
     Dates: start: 1999
  7. ECOTRIN [Concomitant]
     Indication: RHEUMATOID ARTHRITIS
     Dosage: 2600 MG, QD
     Route: 048
  8. METHOTREXATE [Concomitant]
     Indication: RHEUMATOID ARTHRITIS
     Dosage: 5 MG, QW
  9. METHOTREXATE [Concomitant]
     Dosage: 2.5 MG, QW
  10. METHOTREXATE [Concomitant]
     Dosage: 2.5 MG/3 TIMES PER WEEK
  11. PREDNISONE [Concomitant]
     Indication: RHEUMATOID ARTHRITIS
     Dosage: 7.5 MG, QD
     Dates: start: 1961
  12. PREDNISONE [Concomitant]
     Dosage: 4 MG, QD
     Dates: start: 1961
  13. PREDNISONE [Concomitant]
     Dosage: 5 MG, QD
     Dates: start: 1961
  14. PREDNISONE [Concomitant]
     Dosage: 2 MG, QD
     Dates: start: 1961
  15. ASPIRIN [Concomitant]
     Indication: RHEUMATOID ARTHRITIS
     Dosage: UNK
     Dates: start: 1961

REACTIONS (41)
  - Femur fracture [Unknown]
  - Intramedullary rod insertion [Unknown]
  - Liver function test abnormal [Unknown]
  - Anaemia postoperative [Recovering/Resolving]
  - Electrolyte imbalance [Unknown]
  - Haemarthrosis [Recovering/Resolving]
  - Fall [Unknown]
  - Adverse drug reaction [Recovering/Resolving]
  - Femur fracture [Unknown]
  - Osteoporosis [Unknown]
  - Stress fracture [Unknown]
  - Low turnover osteopathy [Unknown]
  - Skin graft [Unknown]
  - Adverse drug reaction [Unknown]
  - Gait disturbance [Unknown]
  - Asthenia [Unknown]
  - Limb injury [Unknown]
  - Bronchitis [Unknown]
  - Pneumonia [Unknown]
  - Pneumonia [Unknown]
  - Bronchitis [Unknown]
  - Laceration [Unknown]
  - Fall [Unknown]
  - Chronic obstructive pulmonary disease [Not Recovered/Not Resolved]
  - Macular degeneration [Unknown]
  - Anxiety [Unknown]
  - Depression [Unknown]
  - Osteoarthritis [Unknown]
  - Skin atrophy [Unknown]
  - Dyspnoea [Unknown]
  - Cushingoid [Unknown]
  - Synovitis [Unknown]
  - Cardiac murmur [Unknown]
  - Hypoacusis [Unknown]
  - Neuropathy peripheral [Unknown]
  - Rheumatoid arthritis [Not Recovered/Not Resolved]
  - Compression fracture [Unknown]
  - Fractured sacrum [Unknown]
  - Rib fracture [Unknown]
  - Pyrexia [Unknown]
  - Gastrooesophageal reflux disease [Unknown]
